FAERS Safety Report 15975414 (Version 2)
Quarter: 2020Q2

REPORT INFORMATION
  Report Type: Spontaneous
  Country: US (occurrence: US)
  Receive Date: 20190218
  Receipt Date: 20200406
  Transmission Date: 20200713
  Serious: Yes (Other)
  Sender: FDA-Public Use
  Company Number: US-SA-2018SA394926

PATIENT
  Sex: Female

DRUGS (2)
  1. ICY HOT WITH LIDOCAINE [Suspect]
     Active Substance: LIDOCAINE\MENTHOL
  2. ICY HOT NO MESS [MENTHOL] [Concomitant]
     Indication: PAIN
     Dosage: UNK UNK, HS

REACTIONS (2)
  - Product packaging difficult to open [Unknown]
  - Cataract operation [Unknown]
